FAERS Safety Report 9570544 (Version 1)
Quarter: 2013Q4

REPORT INFORMATION
  Report Type: Spontaneous
  Country: US (occurrence: US)
  Receive Date: 20131001
  Receipt Date: 20131001
  Transmission Date: 20140711
  Serious: Yes (Other)
  Sender: FDA-Public Use
  Company Number: US-JNJFOC-20130913287

PATIENT
  Age: 74 Year
  Sex: Female
  Weight: 55.78 kg

DRUGS (26)
  1. IBUPROFEN [Suspect]
     Route: 065
  2. IBUPROFEN [Suspect]
     Indication: BONE PAIN
     Route: 065
  3. SIMVASTATIN [Interacting]
     Indication: BLOOD CHOLESTEROL INCREASED
     Route: 065
  4. LYRICA [Interacting]
     Indication: SPINAL COLUMN STENOSIS
     Route: 065
     Dates: start: 20130912
  5. LYRICA [Interacting]
     Indication: SPINAL COLUMN STENOSIS
     Route: 065
  6. LYRICA [Interacting]
     Indication: SPINAL COLUMN STENOSIS
     Route: 065
  7. LYRICA [Interacting]
     Indication: INTERVERTEBRAL DISC DEGENERATION
     Route: 065
  8. LYRICA [Interacting]
     Indication: INTERVERTEBRAL DISC DEGENERATION
     Route: 065
  9. LYRICA [Interacting]
     Indication: INTERVERTEBRAL DISC DEGENERATION
     Route: 065
     Dates: start: 20130912
  10. LYRICA [Interacting]
     Indication: OSTEOPOROSIS
     Route: 065
  11. LYRICA [Interacting]
     Indication: OSTEOPOROSIS
     Route: 065
  12. LYRICA [Interacting]
     Indication: OSTEOPOROSIS
     Route: 065
     Dates: start: 20130912
  13. OMEPRAZOLE [Interacting]
     Indication: GASTROOESOPHAGEAL REFLUX DISEASE
     Route: 065
  14. OMEPRAZOLE [Interacting]
     Indication: GASTROOESOPHAGEAL REFLUX DISEASE
     Route: 065
  15. OMEPRAZOLE [Interacting]
     Indication: ABDOMINAL DISCOMFORT
     Route: 065
  16. OMEPRAZOLE [Interacting]
     Indication: ABDOMINAL DISCOMFORT
     Route: 065
  17. INDERAL [Interacting]
     Indication: MITRAL VALVE PROLAPSE
     Route: 065
  18. PROBIOTICS [Interacting]
     Indication: DYSPEPSIA
     Route: 065
  19. PROBIOTICS [Interacting]
     Indication: DYSPEPSIA
     Route: 065
  20. PROBIOTICS [Interacting]
     Indication: CONSTIPATION
     Route: 065
  21. PROBIOTICS [Interacting]
     Indication: CONSTIPATION
     Route: 065
  22. BUDESONIDE [Interacting]
     Indication: EMPHYSEMA
     Route: 065
  23. TORADOL [Interacting]
     Indication: BONE PAIN
     Route: 065
  24. VICODIN [Interacting]
     Indication: BONE PAIN
     Route: 065
  25. VITAMIN D3 [Interacting]
     Indication: OSTEOPOROSIS
     Route: 065
  26. ALBUTEROL [Interacting]
     Indication: EMPHYSEMA
     Route: 065

REACTIONS (5)
  - Respiratory tract congestion [Not Recovered/Not Resolved]
  - Drug interaction [Unknown]
  - Dyspnoea [Not Recovered/Not Resolved]
  - Off label use [Unknown]
  - Drug ineffective [Unknown]
